FAERS Safety Report 12182233 (Version 1)
Quarter: 2016Q1

REPORT INFORMATION
  Report Type: Spontaneous
  Country: US (occurrence: US)
  Receive Date: 20160316
  Receipt Date: 20160316
  Transmission Date: 20160526
  Serious: Yes (Other)
  Sender: FDA-Public Use
  Company Number: US-ROCHE-1723157

PATIENT
  Sex: Male

DRUGS (16)
  1. GAZYVA [Suspect]
     Active Substance: OBINUTUZUMAB
     Indication: CHRONIC LYMPHOCYTIC LEUKAEMIA
     Dosage: 1000MG/40ML
     Route: 042
  2. ATENOLOL. [Concomitant]
     Active Substance: ATENOLOL
     Route: 048
  3. HYDROCHLOROTHIAZIDE. [Concomitant]
     Active Substance: HYDROCHLOROTHIAZIDE
     Route: 048
  4. CRESTOR [Concomitant]
     Active Substance: ROSUVASTATIN CALCIUM
     Route: 048
  5. CLINDAMYCIN [Concomitant]
     Active Substance: CLINDAMYCIN\CLINDAMYCIN PHOSPHATE
     Dosage: BEFORE DENTAL APPOINTMENT
     Route: 048
  6. LISINOPRIL. [Concomitant]
     Active Substance: LISINOPRIL
     Route: 048
  7. CICLOPIROX. [Concomitant]
     Active Substance: CICLOPIROX
     Route: 061
  8. LEUKERAN [Concomitant]
     Active Substance: CHLORAMBUCIL
     Dosage: 0.1 MG/KG
     Route: 048
  9. COUMADIN [Concomitant]
     Active Substance: WARFARIN SODIUM
     Route: 065
  10. GABAPENTIN. [Concomitant]
     Active Substance: GABAPENTIN
     Route: 048
  11. NITROGLYCERIN. [Concomitant]
     Active Substance: NITROGLYCERIN
     Dosage: MAX 3 TABLET IN 15 MINS
     Route: 060
  12. MEPHYTON [Concomitant]
     Active Substance: PHYTONADIONE
     Dosage: 1 DOSE
     Route: 048
  13. VITAMIN C [Concomitant]
     Active Substance: ASCORBIC ACID
     Route: 065
  14. X-VIATE [Concomitant]
     Active Substance: UREA
     Route: 061
  15. PROSCAR [Concomitant]
     Active Substance: FINASTERIDE
     Route: 065
  16. TRIAMCINOLONE ACETONIDE SODIUM PHOSPHATE [Concomitant]
     Dosage: FOR 2 WEEKS
     Route: 061

REACTIONS (1)
  - Haematuria [Unknown]
